FAERS Safety Report 9514875 (Version 2)
Quarter: 2014Q1

REPORT INFORMATION
  Report Type: Spontaneous
  Country: US (occurrence: None)
  Receive Date: 20130305
  Receipt Date: 20140306
  Transmission Date: 20141002
  Serious: Yes (Hospitalization, Disabling, Other)
  Sender: FDA-Public Use
  Company Number: 163-21880-12121830

PATIENT
  Age: 78 Year
  Sex: Female
  Weight: 65.32 kg

DRUGS (12)
  1. REVLIMID [Suspect]
     Indication: 5Q MINUS SYNDROME
     Dosage: 10 MG, 1 IN 1 D, PO
     Route: 048
     Dates: start: 200912
  2. AMOXICILLIN (AMOXICILLIN) (UNKNOWN) [Concomitant]
  3. FOSAMAX (ALENDRONATE SODIUM) [Concomitant]
  4. MEGACE (MEGESTROL ACETATE) [Concomitant]
  5. LOTREL (LOTREL) [Concomitant]
  6. MAXZIDE (DYAZIDE) [Concomitant]
  7. LOMOTIL (LOMOTIL) [Concomitant]
  8. ISOSORBIDE MONONITRATE (ISOSORBIDE MONONITRATE)? [Concomitant]
  9. SIMVASTATIN (SIMVASTATIN) [Concomitant]
  10. IRON (IRON) [Concomitant]
  11. TAMOXIFEN (TAMOXIFEN) [Concomitant]
  12. CALCIUM CARBONATE (CALCIUM CARBONATE) (CALCIUM CARBONATE) [Concomitant]

REACTIONS (2)
  - Pneumonia [None]
  - Transient ischaemic attack [None]
